FAERS Safety Report 14670356 (Version 1)
Quarter: 2018Q1

REPORT INFORMATION
  Report Type: Spontaneous
  Country: US (occurrence: US)
  Receive Date: 20180322
  Receipt Date: 20180322
  Transmission Date: 20180509
  Serious: No
  Sender: FDA-Public Use
  Company Number: US-ADAMAS PHARMA, LLC-2018ADA00104

PATIENT
  Sex: Female

DRUGS (2)
  1. GOCOVRI [Suspect]
     Active Substance: AMANTADINE
     Dosage: 1 TABLETS, UNK
  2. GOCOVRI [Suspect]
     Active Substance: AMANTADINE
     Dosage: 2 TABLETS, UNK

REACTIONS (1)
  - Constipation [Unknown]
